FAERS Safety Report 12485124 (Version 2)
Quarter: 2016Q3

REPORT INFORMATION
  Report Type: Spontaneous
  Country: US (occurrence: US)
  Receive Date: 20160621
  Receipt Date: 20160804
  Transmission Date: 20161109
  Serious: Yes (Hospitalization, Other)
  Sender: FDA-Public Use
  Company Number: US-BAYER-2016-119619

PATIENT
  Age: 31 Year
  Sex: Female

DRUGS (1)
  1. MIRENA [Suspect]
     Active Substance: LEVONORGESTREL
     Indication: CONTRACEPTION
     Dosage: 20 MCG/24HR, CONT
     Route: 015
     Dates: start: 20110711, end: 201212

REACTIONS (13)
  - Device dislocation [None]
  - Uterine haemorrhage [None]
  - Abdominal pain lower [None]
  - Somatic symptom disorder [None]
  - Menstruation irregular [None]
  - Device issue [None]
  - Anxiety [None]
  - Emotional distress [None]
  - Back pain [None]
  - Genital haemorrhage [None]
  - Polymenorrhoea [None]
  - Uterine leiomyoma [None]
  - Scar [None]

NARRATIVE: CASE EVENT DATE: 20110711
